FAERS Safety Report 6833750-8 (Version None)
Quarter: 2010Q3

REPORT INFORMATION
  Report Type: 
  Country: None (occurrence: None)
  Receive Date: 20100712
  Receipt Date: 20070402
  Transmission Date: 20110219
  Serious: No
  Sender: FDA-Public Use
  Company Number: US-PFIZER INC-2007026804

PATIENT
  Age: 65 Year
  Sex: Male

DRUGS (1)
  1. CHANTIX [Suspect]
     Indication: SMOKING CESSATION THERAPY
     Dates: start: 20070301

REACTIONS (4)
  - DAYDREAMING [None]
  - FATIGUE [None]
  - NAUSEA [None]
  - SOMNOLENCE [None]
